FAERS Safety Report 23138948 (Version 1)
Quarter: 2023Q4

REPORT INFORMATION
  Report Type: Spontaneous
  Country: US (occurrence: None)
  Receive Date: 20231101
  Receipt Date: 20231101
  Transmission Date: 20240109
  Serious: Yes (Life-Threatening, Hospitalization)
  Sender: FDA-Public Use
  Company Number: None

PATIENT
  Age: 81 Year
  Sex: Male
  Weight: 87 kg

DRUGS (1)
  1. PROLIA [Suspect]
     Active Substance: DENOSUMAB
     Indication: Senile osteoporosis
     Dosage: OTHER FREQUENCY : X1 DOSE;?
     Route: 058
     Dates: start: 20231026, end: 20231026

REACTIONS (4)
  - Malaise [None]
  - Blood calcium decreased [None]
  - Blood magnesium decreased [None]
  - Blood potassium decreased [None]

NARRATIVE: CASE EVENT DATE: 20231028
